FAERS Safety Report 9333816 (Version 1)
Quarter: 2013Q2

REPORT INFORMATION
  Report Type: Spontaneous
  Country: CA (occurrence: None)
  Receive Date: 20130604
  Receipt Date: 20130604
  Transmission Date: 20140414
  Serious: Yes (Hospitalization)
  Sender: FDA-Public Use
  Company Number: 2013000120

PATIENT
  Age: 69 Year
  Sex: Female
  Weight: 98 kg

DRUGS (13)
  1. ACEON [Suspect]
     Indication: PRODUCT USED FOR UNKNOWN INDICATION
     Dates: start: 2013, end: 20130517
  2. ACTEMRA [Suspect]
     Indication: RHEUMATOID ARTHRITIS
     Dosage: 1 DF, EVERY 4 WEEKS, INTRAVENOUS
     Route: 042
  3. SYNTHROID (LEVOTHYROXINE SODIUM) [Suspect]
     Indication: PRODUCT USED FOR UNKNOWN INDICATION
  4. LIPITOR (ATORVASTATIN CALCIUM) [Suspect]
     Indication: PRODUCT USED FOR UNKNOWN INDICATION
     Dates: start: 2013, end: 20130517
  5. APO-NADOL [Suspect]
     Indication: PRODUCT USED FOR UNKNOWN INDICATION
     Dates: start: 2013, end: 20130517
  6. TYLENOL (PARACETAMOL) [Concomitant]
  7. EFFEXOR (VANLAFAXINE HYDROCHLORIDE) [Concomitant]
  8. ZOCOR (SIMVASTATIN) [Suspect]
  9. XANAX (ALPRAZOLAM) [Concomitant]
  10. DELATESTRYL (TESTOSTERONE ENANTATE) [Concomitant]
  11. DELESTROGEN (ESTRADIOL VALERATE) [Concomitant]
  12. VITAMIN D (VITAMIN D) [Concomitant]
  13. CALCIUM (CALCIUM) [Concomitant]

REACTIONS (4)
  - Cardiac failure congestive [None]
  - Dyspnoea [None]
  - Gait disturbance [None]
  - Atrial fibrillation [None]
